FAERS Safety Report 4861839-1 (Version None)
Quarter: 2005Q4

REPORT INFORMATION
  Report Type: 
  Country: None (occurrence: None)
  Receive Date: 20051129
  Receipt Date: 20050609
  Transmission Date: 20060501
  Serious: Yes (Disabling)
  Sender: FDA-Public Use
  Company Number: WAES 0506USA01608

PATIENT
  Age: 64 Year
  Sex: Female

DRUGS (8)
  1. FOSAMAX [Suspect]
     Indication: BONE DENSITY DECREASED
     Dosage: 35 MG WKY PO
     Route: 048
     Dates: start: 20050530, end: 20050606
  2. ADVAIR DISKUS 250/50 [Concomitant]
  3. LIPITOR [Concomitant]
  4. PAXIL [Concomitant]
  5. RISPERDAL [Concomitant]
  6. SINGULAIR [Concomitant]
  7. ASPIRIN [Concomitant]
  8. TRAZODONE HCL [Concomitant]

REACTIONS (1)
  - ARTHRALGIA [None]
